FAERS Safety Report 4539009-6 (Version None)
Quarter: 2004Q4

REPORT INFORMATION
  Report Type: 
  Country: None (occurrence: None)
  Receive Date: 20041222
  Receipt Date: 20041206
  Transmission Date: 20050328
  Serious: Yes (Other)
  Sender: FDA-Public Use
  Company Number: US_0411107991

PATIENT
  Age: 76 Year
  Sex: Female
  Weight: 73 kg

DRUGS (20)
  1. FORTEO [Suspect]
     Indication: OSTEOPOROSIS
     Dosage: 20 UG/1 DAY
     Dates: start: 20030301, end: 20040917
  2. ALLEGRA [Concomitant]
  3. FLU ^CONNAUGHT^ (INFLUENZA VACCINE) [Concomitant]
  4. DYAZIDE [Concomitant]
  5. IRON PLUS [Concomitant]
  6. ALBUTEROL SULFATE W/ IPRATROPIUM BROMIDE [Concomitant]
  7. ALBUTEROL SULFATE W/IPRATROPIUM BROMIDE [Concomitant]
  8. FLOVENT [Concomitant]
  9. VITAMIN C [Concomitant]
  10. PRILOSEC (OMEPRAZOLE RATIOPHARM) [Concomitant]
  11. ACETAMINOPHEN [Concomitant]
  12. LORCET-HD [Concomitant]
  13. ASPIRIN [Concomitant]
  14. GLUCOSAMINE CHONDROITIN [Concomitant]
  15. MAALOX ANTIDIARRHEAL (LOPERAMIDE HYDROCHLORIDE) [Concomitant]
  16. OXYGEN [Concomitant]
  17. VITAMIN CAP [Concomitant]
  18. MELATONIN PLUS VALERIAN POWER [Concomitant]
  19. FLAX SEED OIL [Concomitant]
  20. ALBUTEROL SULFATE [Concomitant]

REACTIONS (4)
  - APNOEA [None]
  - CHRONIC OBSTRUCTIVE AIRWAYS DISEASE EXACERBATED [None]
  - NASOPHARYNGITIS [None]
  - PULMONARY OEDEMA [None]
